FAERS Safety Report 5473477-0 (Version None)
Quarter: 2007Q3

REPORT INFORMATION
  Report Type: 
  Country: None (occurrence: None)
  Receive Date: 20070828
  Receipt Date: 20070727
  Transmission Date: 20080115
  Serious: Yes (Hospitalization, Other)
  Sender: FDA-Public Use
  Company Number: 2007048235

PATIENT
  Age: 69 Year
  Sex: Female
  Weight: 62.1 kg

DRUGS (4)
  1. EXUBERA [Suspect]
     Indication: TYPE 2 DIABETES MELLITUS
     Dosage: 3 MG
     Dates: start: 20070502
  2. AVANDAMET [Concomitant]
  3. HERBAL PREPARATION (HERBAL PREPARATION) [Concomitant]
  4. GLIPIZIDE [Concomitant]

REACTIONS (2)
  - HYPERGLYCAEMIA [None]
  - HYPOGLYCAEMIA [None]
